FAERS Safety Report 24659122 (Version 1)
Quarter: 2024Q4

REPORT INFORMATION
  Report Type: Spontaneous
  Country: RU (occurrence: RU)
  Receive Date: 20241125
  Receipt Date: 20241125
  Transmission Date: 20250115
  Serious: Yes (Other)
  Sender: ROCHE
  Company Number: RU-ROCHE-10000137161

PATIENT

DRUGS (1)
  1. ENTRECTINIB [Suspect]
     Active Substance: ENTRECTINIB
     Indication: Product used for unknown indication
     Route: 065

REACTIONS (4)
  - Gait disturbance [Unknown]
  - Neuropathy peripheral [Unknown]
  - Bronchial obstruction [Unknown]
  - Pneumonitis [Unknown]
